FAERS Safety Report 7145197-8 (Version None)
Quarter: 2010Q4

REPORT INFORMATION
  Report Type: 
  Country: None (occurrence: None)
  Receive Date: 20101208
  Receipt Date: 20101130
  Transmission Date: 20110411
  Serious: Yes (Other)
  Sender: FDA-Public Use
  Company Number: US-PFIZER INC-2010161069

PATIENT
  Sex: Male
  Weight: 86.2 kg

DRUGS (6)
  1. CADUET [Suspect]
     Indication: BLOOD PRESSURE INCREASED
     Dosage: 5/10 MG, DAILY
     Route: 048
     Dates: start: 20050101
  2. CADUET [Suspect]
     Indication: BLOOD CHOLESTEROL INCREASED
  3. LORATADINE [Concomitant]
     Dosage: UNK
  4. BENADRYL [Concomitant]
     Dosage: UNK
  5. LISINOPRIL [Concomitant]
     Dosage: UNK
  6. ACETYLSALICYLIC ACID [Concomitant]
     Dosage: UNK

REACTIONS (2)
  - CARDIAC STRESS TEST ABNORMAL [None]
  - ELECTROCARDIOGRAM ABNORMAL [None]
